FAERS Safety Report 7568823-8 (Version None)
Quarter: 2011Q2

REPORT INFORMATION
  Report Type: 
  Country: None (occurrence: None)
  Receive Date: 20110623
  Receipt Date: 20110621
  Transmission Date: 20111010
  Serious: Yes (Other)
  Sender: FDA-Public Use
  Company Number: CN-PFIZER INC-2011131561

PATIENT
  Age: 23 Year
  Sex: Female

DRUGS (2)
  1. MEROPENEM [Concomitant]
  2. ZYVOX [Suspect]
     Indication: BACTERIAL INFECTION
     Dosage: 0.6 G, 2X/DAY
     Route: 048

REACTIONS (1)
  - CARDIAC DISORDER [None]
